FAERS Safety Report 9424044 (Version 1)
Quarter: 2013Q3

REPORT INFORMATION
  Report Type: Spontaneous
  Country: US (occurrence: US)
  Receive Date: 20130729
  Receipt Date: 20130729
  Transmission Date: 20140515
  Serious: Yes (Other)
  Sender: FDA-Public Use
  Company Number: US-009507513-1307USA013288

PATIENT
  Sex: Male

DRUGS (1)
  1. NASONEX [Suspect]

REACTIONS (2)
  - Heart valve replacement [Unknown]
  - Epistaxis [Unknown]
